FAERS Safety Report 5966825-6 (Version None)
Quarter: 2008Q4

REPORT INFORMATION
  Report Type: 
  Country: None (occurrence: None)
  Receive Date: 20081125
  Receipt Date: 20081113
  Transmission Date: 20090506
  Serious: Yes (Death, Other)
  Sender: FDA-Public Use
  Company Number: ZW-B.I. PHARMACEUTICALS,INC./RIDGEFIELD-2008-DE-06927GD

PATIENT
  Age: 17 Year
  Sex: Male

DRUGS (3)
  1. NEVIRAPINE [Suspect]
     Indication: HIV INFECTION
  2. STAVUDINE [Suspect]
     Indication: HIV INFECTION
  3. LAMIVUDINE [Suspect]
     Indication: HIV INFECTION

REACTIONS (3)
  - BILE DUCT CANCER [None]
  - HEPATIC FUNCTION ABNORMAL [None]
  - METASTASIS [None]
